FAERS Safety Report 4747203-4 (Version None)
Quarter: 2005Q3

REPORT INFORMATION
  Report Type: 
  Country: None (occurrence: None)
  Receive Date: 20050815
  Receipt Date: 20050801
  Transmission Date: 20060218
  Serious: Yes (Hospitalization)
  Sender: FDA-Public Use
  Company Number: 2005097549

PATIENT
  Age: 70 Year
  Sex: Female
  Weight: 101.4 kg

DRUGS (5)
  1. AROMASIN [Suspect]
     Indication: BREAST CANCER FEMALE
     Dosage: 25 MG (25 MG, DAILY),ORAL
     Route: 048
     Dates: start: 20050412, end: 20050522
  2. LISINOPRIL [Concomitant]
  3. GLIPIZIDE [Concomitant]
  4. ISONIAZID [Concomitant]
  5. PYRIDOXINE (PYRIDOXINE) [Concomitant]

REACTIONS (10)
  - ASTHENIA [None]
  - BLOOD CHOLESTEROL INCREASED [None]
  - BLOOD TRIGLYCERIDES INCREASED [None]
  - CEREBROVASCULAR ACCIDENT [None]
  - CHEST PAIN [None]
  - DYSPHEMIA [None]
  - DYSPNOEA [None]
  - HEADACHE [None]
  - LIP DISORDER [None]
  - LOW DENSITY LIPOPROTEIN INCREASED [None]
